FAERS Safety Report 22629490 (Version 1)
Quarter: 2023Q2

REPORT INFORMATION
  Report Type: Spontaneous
  Country: CN (occurrence: CN)
  Receive Date: 20230622
  Receipt Date: 20230622
  Transmission Date: 20230722
  Serious: Yes (Hospitalization)
  Sender: FDA-Public Use
  Company Number: CN-009507513-2306CHN009937

PATIENT
  Age: 39 Year
  Sex: Female
  Weight: 54 kg

DRUGS (6)
  1. KEYTRUDA [Suspect]
     Active Substance: PEMBROLIZUMAB
     Indication: Triple negative breast cancer
     Dosage: 200 MG, Q3W
     Route: 041
     Dates: start: 20220617, end: 20220727
  2. KEYTRUDA [Suspect]
     Active Substance: PEMBROLIZUMAB
     Dosage: 200 MG, Q3W
     Route: 041
     Dates: start: 20220823
  3. CARBOPLATIN [Suspect]
     Active Substance: CARBOPLATIN
     Indication: Triple negative breast cancer
     Dosage: 0.5 MG, Q3W
     Route: 041
     Dates: start: 20220616, end: 20220726
  4. CARBOPLATIN [Suspect]
     Active Substance: CARBOPLATIN
     Dosage: 0.5 MG, Q3W
     Route: 041
     Dates: start: 20220823
  5. PACLITAXEL [Suspect]
     Active Substance: PACLITAXEL
     Indication: Triple negative breast cancer
     Dosage: 0.3 MG, Q3W
     Route: 041
     Dates: start: 20220617, end: 20220726
  6. PACLITAXEL [Suspect]
     Active Substance: PACLITAXEL
     Dosage: 0.3 MG, Q3W
     Route: 041
     Dates: start: 20220823

REACTIONS (2)
  - Platelet count decreased [Recovering/Resolving]
  - Inappropriate schedule of product administration [Unknown]

NARRATIVE: CASE EVENT DATE: 20220705
